FAERS Safety Report 5624969-2 (Version None)
Quarter: 2008Q1

REPORT INFORMATION
  Report Type: 
  Country: None (occurrence: None)
  Receive Date: 20080213
  Receipt Date: 20080201
  Transmission Date: 20080703
  Serious: Yes (Other)
  Sender: FDA-Public Use
  Company Number: GB-PFIZER INC-2008011656

PATIENT
  Age: 24 Year
  Sex: Female

DRUGS (1)
  1. CHANTIX [Suspect]
     Route: 048
     Dates: start: 20080114, end: 20080117

REACTIONS (5)
  - DIZZINESS [None]
  - HEADACHE [None]
  - PALPITATIONS [None]
  - PHOTOPSIA [None]
  - VOMITING [None]
